FAERS Safety Report 14202433 (Version 2)
Quarter: 2018Q2

REPORT INFORMATION
  Report Type: Report from Study
  Country: US (occurrence: US)
  Receive Date: 20171117
  Receipt Date: 20180505
  Transmission Date: 20180711
  Serious: No
  Sender: FDA-Public Use
  Company Number: PHEH2017US037117

PATIENT
  Sex: Male

DRUGS (2)
  1. COSENTYX [Suspect]
     Active Substance: SECUKINUMAB
     Indication: ANKYLOSING SPONDYLITIS
     Dosage: 150 MG, QMO
     Route: 058
  2. COSENTYX [Suspect]
     Active Substance: SECUKINUMAB
     Dosage: 300 MG, BIW (ONCE EVERY TWO WEEKS)
     Route: 058

REACTIONS (8)
  - Bone pain [Unknown]
  - Eye disorder [Unknown]
  - Eye pain [Unknown]
  - Weight increased [Unknown]
  - Photosensitivity reaction [Unknown]
  - Osteitis [Unknown]
  - Drug prescribing error [Unknown]
  - Musculoskeletal stiffness [Unknown]
